FAERS Safety Report 10344214 (Version 2)
Quarter: 2015Q2

REPORT INFORMATION
  Report Type: Spontaneous
  Country: FR (occurrence: FR)
  Receive Date: 20140728
  Receipt Date: 20150626
  Transmission Date: 20150821
  Serious: Yes (Hospitalization)
  Sender: FDA-Public Use
  Company Number: FR-UCBSA-2014006018

PATIENT
  Age: 72 Year
  Sex: Female

DRUGS (8)
  1. PANTOPRAZOLE [Concomitant]
     Active Substance: PANTOPRAZOLE SODIUM
     Dosage: 20 MG, ONCE DAILY (QD) (20MG/DAY)
  2. DIFFU K [Concomitant]
     Active Substance: POTASSIUM CHLORIDE
     Dosage: 600 MG, 2X/DAY (BID)
  3. KARDEGIC [Concomitant]
     Active Substance: ASPIRIN LYSINE
     Dosage: 75 MG, ONCE DAILY (QD) (75MG/DAY)
  4. ESIDREX [Concomitant]
     Active Substance: HYDROCHLOROTHIAZIDE
     Dosage: 25 MG, ONCE DAILY (QD) (25MG/DAY)
  5. TAHOR [Concomitant]
     Active Substance: ATORVASTATIN CALCIUM
     Dosage: 10 MG, ONCE DAILY (QD) (10MG/DAY)
  6. ALTEIS [Concomitant]
     Active Substance: OLMESARTAN MEDOXOMIL
     Dosage: 40 MG, ONCE DAILY (QD) (40MG/DAY)
  7. VIMPAT [Suspect]
     Active Substance: LACOSAMIDE
     Indication: EPILEPSY
     Dosage: 100 MG, 2X/DAY (BID)
     Route: 048
     Dates: start: 20140525, end: 20140707
  8. LEVOTHYROXINE [Concomitant]
     Active Substance: LEVOTHYROXINE
     Dosage: 100 ?G, ONCE DAILY (QD) (100?G/DAY)

REACTIONS (3)
  - Bradycardia [Recovered/Resolved]
  - Atrioventricular block complete [Recovered/Resolved]
  - Partial seizures [Recovered/Resolved]

NARRATIVE: CASE EVENT DATE: 20140705
